FAERS Safety Report 6775270-5 (Version None)
Quarter: 2010Q2

REPORT INFORMATION
  Report Type: 
  Country: None (occurrence: None)
  Receive Date: 20100617
  Receipt Date: 20100609
  Transmission Date: 20101027
  Serious: Yes (Life-Threatening)
  Sender: FDA-Public Use
  Company Number: GXKR2010TR06365

PATIENT
  Age: 17 Year
  Sex: Male

DRUGS (2)
  1. SULFAMETHOXAZOLE+TRIMETHOPRIM (NGX) [Suspect]
     Dosage: 24 DF, TRIMETHOPRIM (PER 80 MG; TOTAL 1,920 MG) - SULFAMETHOXAZOLE (PER 400 MG; TOTAL 9,600 MG)
     Route: 048
  2. PROPAFENONE (NGX) [Suspect]
     Dosage: 20 DF, PROPAFENONE (PER 300 MG; TOTAL 6,000 MG)
     Route: 048

REACTIONS (8)
  - ACIDOSIS [None]
  - CARDIO-RESPIRATORY ARREST [None]
  - CYANOSIS [None]
  - INTENTIONAL OVERDOSE [None]
  - LOSS OF CONSCIOUSNESS [None]
  - MECHANICAL VENTILATION [None]
  - NAUSEA [None]
  - VOMITING [None]
